FAERS Safety Report 8150431-1 (Version None)
Quarter: 2012Q1

REPORT INFORMATION
  Report Type: 
  Country: None (occurrence: None)
  Receive Date: 20120220
  Receipt Date: 20120213
  Transmission Date: 20120608
  Serious: Yes (Hospitalization)
  Sender: FDA-Public Use
  Company Number: US-BAYER-2011-042270

PATIENT
  Age: 47 Year
  Sex: Female
  Weight: 84 kg

DRUGS (28)
  1. YASMIN [Suspect]
     Indication: MENSTRUATION IRREGULAR
     Dosage: UNK
     Dates: start: 20080601, end: 20090901
  2. DROSPIRENONE AND ETHINYL ESTRADIOL [Suspect]
     Indication: PREMENSTRUAL SYNDROME
     Dosage: UNK
     Dates: start: 20080101
  3. MAXALT [Concomitant]
     Indication: HEADACHE
     Dosage: UNK
     Dates: start: 20090312, end: 20090626
  4. YASMIN [Suspect]
     Indication: PREMENSTRUAL SYNDROME
     Dosage: UNK
     Dates: start: 20020101, end: 20090101
  5. YASMIN [Suspect]
     Indication: DYSMENORRHOEA
     Dosage: UNK
     Dates: start: 20051001, end: 20070401
  6. DROSPIRENONE AND ETHINYL ESTRADIOL [Suspect]
     Indication: OVARIAN CYST
  7. FLUOXETINE [Concomitant]
     Indication: DEPRESSION
     Dosage: UNK
     Dates: start: 20010101, end: 20090521
  8. PROPOXYPHENE NAPSYLATE W/PARACETAMOL [Concomitant]
     Indication: ARTHRALGIA
     Dosage: UNK
     Dates: start: 20080721, end: 20090925
  9. CYCLOBENZAPRINE [Concomitant]
     Indication: ARTHRALGIA
     Dosage: UNK
     Dates: start: 20001213, end: 20090921
  10. IBUPROFEN [Concomitant]
     Indication: ARTHRALGIA
     Dosage: UNK
     Dates: start: 20090826, end: 20090915
  11. IBUPROFEN (ADVIL) [Concomitant]
     Dosage: UNK
     Dates: start: 20090514
  12. WELLBUTRIN [Concomitant]
  13. CLONAZEPAM [Concomitant]
     Indication: ANXIETY
     Dosage: UNK
     Dates: start: 20080101, end: 20091031
  14. HYOSCYAMINE [Concomitant]
  15. DEPO-MEDROL [Concomitant]
     Indication: OSTEOARTHRITIS
     Dosage: UNK
     Dates: start: 20090904
  16. YASMIN [Suspect]
     Indication: OVARIAN CYST
     Dosage: UNK
     Dates: start: 20040901, end: 20050101
  17. DROSPIRENONE AND ETHINYL ESTRADIOL [Suspect]
     Indication: MENSTRUATION IRREGULAR
  18. TRAMADOL HCL [Concomitant]
     Indication: ARTHRALGIA
     Dosage: UNK
     Dates: start: 20081212, end: 20090513
  19. DARVOCET [Concomitant]
     Dosage: UNK
     Dates: start: 20090701
  20. EFFEXOR [Concomitant]
  21. CLONAZEPAM [Concomitant]
     Indication: PANIC REACTION
  22. NAPROXEN (ALEVE) [Concomitant]
     Dosage: UNK
     Dates: start: 20090701
  23. BUSPIRONE HCL [Concomitant]
     Dosage: UNK
     Dates: start: 20090615
  24. ZOLOFT [Concomitant]
  25. SUMATRIPTAN [Concomitant]
     Indication: MIGRAINE
     Dosage: UNK
     Dates: start: 20090527
  26. PSEUDOEPHEDRINE HCL [Concomitant]
     Dosage: UNK
     Dates: start: 20090514
  27. PROZAC [Concomitant]
  28. XANAX [Concomitant]

REACTIONS (7)
  - ANXIETY [None]
  - PERIPHERAL ISCHAEMIA [None]
  - DRUG HYPERSENSITIVITY [None]
  - EMOTIONAL DISTRESS [None]
  - CYANOSIS [None]
  - PAIN [None]
  - ARTERIAL THROMBOSIS [None]
